FAERS Safety Report 5768743-5 (Version None)
Quarter: 2008Q2

REPORT INFORMATION
  Report Type: 
  Country: None (occurrence: None)
  Receive Date: 20080612
  Receipt Date: 20080605
  Transmission Date: 20081010
  Serious: Yes (Hospitalization)
  Sender: FDA-Public Use
  Company Number: FR-BOEHRINGER INGELHEIM GMBH, GERMANY-2008-FF-00430FF

PATIENT
  Sex: Female

DRUGS (6)
  1. SPIRIVA [Suspect]
     Indication: EMPHYSEMA
     Route: 055
     Dates: end: 20070924
  2. DURAGESIC-100 [Suspect]
     Indication: OSTEOARTHRITIS
     Dosage: 50 MCG/HOUR 8,4 MG/21 CM2
     Route: 062
  3. LEXOMIL [Concomitant]
     Indication: DEPRESSION
     Route: 048
     Dates: end: 20070925
  4. LORAZEPAM [Concomitant]
     Indication: DEPRESSION
     Route: 048
  5. PROZAC [Concomitant]
     Indication: DEPRESSION
     Route: 048
     Dates: end: 20070924
  6. SYMBICORT [Concomitant]
     Indication: EMPHYSEMA
     Route: 055

REACTIONS (2)
  - HYPOTENSION [None]
  - RESPIRATORY DEPRESSION [None]
